FAERS Safety Report 10163143 (Version 2)
Quarter: 2014Q2

REPORT INFORMATION
  Report Type: Spontaneous
  Country: US (occurrence: US)
  Receive Date: 20140509
  Receipt Date: 20140602
  Transmission Date: 20141212
  Serious: Yes (Hospitalization)
  Sender: FDA-Public Use
  Company Number: US-GLAXOSMITHKLINE-A1072473A

PATIENT
  Age: 45 Year
  Sex: Male

DRUGS (3)
  1. ADVAIR HFA [Suspect]
     Indication: ASTHMA
     Dosage: 1PUFF TWICE PER DAY
     Route: 065
     Dates: start: 20100208
  2. VENTOLIN [Suspect]
     Indication: ASTHMA
     Route: 065
     Dates: start: 20120316
  3. NO CONCURRENT MEDICATIONS [Concomitant]

REACTIONS (6)
  - Cardiac operation [Recovering/Resolving]
  - Cardiac failure congestive [Recovering/Resolving]
  - Pericardial effusion [Recovering/Resolving]
  - Swelling [Recovering/Resolving]
  - Fluid retention [Recovering/Resolving]
  - Palpitations [Recovering/Resolving]
